FAERS Safety Report 7749234-9 (Version None)
Quarter: 2011Q3

REPORT INFORMATION
  Report Type: 
  Country: None (occurrence: None)
  Receive Date: 20110914
  Receipt Date: 20110906
  Transmission Date: 20111222
  Serious: Yes (Hospitalization)
  Sender: FDA-Public Use
  Company Number: RU-B.I. PHARMACEUTICALS,INC./RIDGEFIELD-2011-AP-00454AP

PATIENT
  Age: 72 Year
  Sex: Female

DRUGS (9)
  1. OMEPRASOL [Concomitant]
     Indication: PROPHYLAXIS AGAINST GASTROINTESTINAL ULCER
     Dosage: 20 MG
     Dates: start: 20110715, end: 20110803
  2. ACETYLICISILATE ACID [Concomitant]
     Dosage: 0.5 MG
     Dates: start: 20110730
  3. DEPHENYLHYDRAMINE [Concomitant]
     Indication: ANALGESIC THERAPY
     Dosage: 1 MG
     Dates: start: 20110715
  4. PRADAXA [Suspect]
     Indication: HIP ARTHROPLASTY
  5. TRAMADOL-ACETOMENOPHEN [Concomitant]
     Indication: ANALGESIC THERAPY
     Dosage: 2 TABLETS PER DAY
     Dates: start: 20110715
  6. ACETAMINOPHEN [Concomitant]
     Indication: PYREXIA
     Dosage: 1 MG
     Dates: start: 20110719
  7. PRADAXA [Suspect]
     Indication: THROMBOSIS PROPHYLAXIS
     Dosage: 220 MG
     Route: 048
     Dates: start: 20110716, end: 20110723
  8. CEPHASOLIN [Concomitant]
     Indication: INFECTION PROPHYLAXIS
     Dosage: FORMULATION: VIALS
     Dates: start: 20110715
  9. KETOPROPHEN [Concomitant]
     Dosage: 100 MG
     Dates: start: 20110715, end: 20110803

REACTIONS (2)
  - DEEP VEIN THROMBOSIS [None]
  - DRUG INEFFECTIVE [None]
